FAERS Safety Report 13823620 (Version 1)
Quarter: 2017Q3

REPORT INFORMATION
  Report Type: Spontaneous
  Country: MY (occurrence: MY)
  Receive Date: 20170802
  Receipt Date: 20170802
  Transmission Date: 20171127
  Serious: Yes (Other)
  Sender: FDA-Public Use
  Company Number: MY-009507513-1707MYS012682

PATIENT
  Age: 59 Year
  Sex: Male

DRUGS (1)
  1. TIENAM [Suspect]
     Active Substance: CILASTATIN SODIUM\IMIPENEM
     Indication: ABDOMINAL ABSCESS
     Dosage: STRENGTH REPORTED AS 500MG;
     Route: 042

REACTIONS (2)
  - Acute lung injury [Recovered/Resolved]
  - Urticaria [Recovered/Resolved]
